FAERS Safety Report 7604104-1 (Version None)
Quarter: 2011Q3

REPORT INFORMATION
  Report Type: 
  Country: None (occurrence: None)
  Receive Date: 20110712
  Receipt Date: 20110707
  Transmission Date: 20111222
  Serious: Yes (Hospitalization, Other)
  Sender: FDA-Public Use
  Company Number: BR-PFIZER INC-2011154420

PATIENT
  Age: 45 Year
  Sex: Female

DRUGS (1)
  1. ZOLOFT [Suspect]
     Indication: BIPOLAR DISORDER
     Dosage: 2 DF, 1X/DAY
     Route: 048
     Dates: start: 19990707, end: 20050101

REACTIONS (2)
  - DEPRESSION [None]
  - BIPOLAR DISORDER [None]
